FAERS Safety Report 10191303 (Version 1)
Quarter: 2014Q2

REPORT INFORMATION
  Report Type: Spontaneous
  Country: US (occurrence: US)
  Receive Date: 20140523
  Receipt Date: 20140523
  Transmission Date: 20141212
  Serious: Yes (Hospitalization)
  Sender: FDA-Public Use
  Company Number: US-SA-2014SA065728

PATIENT
  Age: 78 Year
  Sex: Female

DRUGS (2)
  1. ALLEGRA [Suspect]
     Indication: HYPERSENSITIVITY
     Route: 048
  2. COUMADIN [Concomitant]
     Route: 065

REACTIONS (4)
  - Adverse event [Unknown]
  - Decreased appetite [Unknown]
  - Malaise [Unknown]
  - Blood disorder [Unknown]
